FAERS Safety Report 23324059 (Version 1)
Quarter: 2023Q4

REPORT INFORMATION
  Report Type: Spontaneous
  Country: JP (occurrence: JP)
  Receive Date: 20231221
  Receipt Date: 20231221
  Transmission Date: 20240110
  Serious: Yes (Other)
  Sender: FDA-Public Use
  Company Number: JP-TAKEDA-2023TJP016973

PATIENT
  Age: 70 Year
  Sex: Female

DRUGS (1)
  1. AGRYLIN [Suspect]
     Active Substance: ANAGRELIDE HYDROCHLORIDE
     Indication: Polycythaemia vera
     Dosage: UNK
     Route: 065

REACTIONS (3)
  - Pulmonary capillary haemangiomatosis [Unknown]
  - Pulmonary hypertension [Recovering/Resolving]
  - Off label use [Unknown]
